FAERS Safety Report 21466047 (Version 1)
Quarter: 2022Q4

REPORT INFORMATION
  Report Type: Spontaneous
  Country: IT (occurrence: IT)
  Receive Date: 20221017
  Receipt Date: 20221017
  Transmission Date: 20230113
  Serious: Yes (Other)
  Sender: FDA-Public Use
  Company Number: None

PATIENT
  Age: 66 Year
  Sex: Male
  Weight: 77 kg

DRUGS (4)
  1. OXALIPLATIN [Suspect]
     Active Substance: OXALIPLATIN
     Indication: Adjuvant therapy
     Dosage: 240 MILLIGRAM
     Route: 042
     Dates: start: 20220511, end: 20220622
  2. OXALIPLATIN [Suspect]
     Active Substance: OXALIPLATIN
     Indication: Adenocarcinoma of colon
  3. CAPECITABINE [Interacting]
     Active Substance: CAPECITABINE
     Indication: Adenocarcinoma of colon
     Dosage: 3000 MILLIGRAM
     Route: 042
     Dates: start: 20220511, end: 20220622
  4. CAPECITABINE [Interacting]
     Active Substance: CAPECITABINE
     Indication: Adjuvant therapy

REACTIONS (2)
  - Thrombocytopenia [Recovering/Resolving]
  - Drug interaction [Unknown]

NARRATIVE: CASE EVENT DATE: 20220727
